FAERS Safety Report 9106984 (Version 1)
Quarter: 2013Q1

REPORT INFORMATION
  Report Type: Spontaneous
  Country: US (occurrence: US)
  Receive Date: 20130221
  Receipt Date: 20130221
  Transmission Date: 20140127
  Serious: Yes (Hospitalization, Other)
  Sender: FDA-Public Use
  Company Number: US-BAXTER-2013BAX005943

PATIENT
  Age: 52 None
  Sex: Female

DRUGS (2)
  1. DIANEAL LOW CALCIUM [Suspect]
     Indication: PERITONEAL DIALYSIS
     Route: 033
  2. DIANEAL LOW CALCIUM [Suspect]
     Indication: PERITONEAL DIALYSIS
     Route: 033
     Dates: start: 20120726

REACTIONS (6)
  - Sinusitis [Recovering/Resolving]
  - Ear infection [Recovering/Resolving]
  - Decreased appetite [Recovering/Resolving]
  - Rotator cuff syndrome [Recovering/Resolving]
  - Hypercalcaemia [Recovering/Resolving]
  - Sleep apnoea syndrome [Unknown]
